FAERS Safety Report 5275705-3 (Version None)
Quarter: 2007Q1

REPORT INFORMATION
  Report Type: 
  Country: None (occurrence: None)
  Receive Date: 20061213
  Receipt Date: 20060718
  Transmission Date: 20070707
  Serious: Yes (Hospitalization)
  Sender: FDA-Public Use
  Company Number: 2006UW09586

PATIENT
  Age: 52 Year
  Sex: Male
  Weight: 121.1104 kg

DRUGS (7)
  1. SEROQUEL [Suspect]
     Indication: SCHIZOPHRENIA
     Dosage: 200 MG BID; PO
     Route: 048
     Dates: start: 20040101, end: 20060601
  2. PRILOSEC OTC [Concomitant]
  3. LOPID [Concomitant]
  4. LORTAB [Concomitant]
  5. FLEXERIL [Concomitant]
  6. TRAZODONE HCL [Concomitant]
  7. CYMBALTA [Concomitant]

REACTIONS (2)
  - DIABETES MELLITUS [None]
  - DIABETIC KETOACIDOSIS [None]
